FAERS Safety Report 13055854 (Version 2)
Quarter: 2016Q4

REPORT INFORMATION
  Report Type: Spontaneous
  Country: GB (occurrence: GB)
  Receive Date: 20161222
  Receipt Date: 20161230
  Transmission Date: 20170207
  Serious: Yes (Other)
  Sender: FDA-Public Use
  Company Number: GB-BAYER-2016-237129

PATIENT
  Age: 40 Year
  Sex: Female

DRUGS (4)
  1. FRAGMIN [Suspect]
     Active Substance: DALTEPARIN SODIUM
     Indication: PREGNANCY
     Route: 065
  2. HUMIRA [Suspect]
     Active Substance: ADALIMUMAB
     Indication: PREGNANCY
     Route: 065
  3. PROGESTERONE. [Suspect]
     Active Substance: PROGESTERONE
     Indication: PREGNANCY
     Route: 065
  4. ASPIRIN. [Suspect]
     Active Substance: ASPIRIN
     Indication: PREGNANCY
     Dosage: UNK
     Route: 065

REACTIONS (5)
  - Abortion [Unknown]
  - Labelled drug-drug interaction medication error [Unknown]
  - Vaginal haemorrhage [Unknown]
  - Maternal exposure during pregnancy [Unknown]
  - Drug administration error [Unknown]
